FAERS Safety Report 15734271 (Version 1)
Quarter: 2018Q4

REPORT INFORMATION
  Report Type: Spontaneous
  Country: US (occurrence: US)
  Receive Date: 20181203
  Receipt Date: 20181203
  Transmission Date: 20190205
  Serious: Yes (Hospitalization)
  Sender: FDA-Public Use
  Company Number: None

PATIENT
  Age: 72 Year
  Sex: Male

DRUGS (2)
  1. LISINOPRIL. [Suspect]
     Active Substance: LISINOPRIL
     Indication: HYPERTENSION
     Route: 048
     Dates: start: 20180927, end: 20181024
  2. LISINOPRIL. [Suspect]
     Active Substance: LISINOPRIL
     Indication: CHRONIC KIDNEY DISEASE

REACTIONS (3)
  - Acute kidney injury [None]
  - Renal tubular necrosis [None]
  - Hyperkalaemia [None]

NARRATIVE: CASE EVENT DATE: 20181024
